FAERS Safety Report 24036947 (Version 2)
Quarter: 2024Q3

REPORT INFORMATION
  Report Type: Report from Study
  Country: IT (occurrence: IT)
  Receive Date: 20240701
  Receipt Date: 20240816
  Transmission Date: 20241017
  Serious: No
  Sender: KARYOPHARM THERAPEUTICS
  Company Number: IT-KARYOPHARM-2024KPT001214

PATIENT
  Age: 65 Year
  Sex: Male

DRUGS (1)
  1. SELINEXOR [Suspect]
     Active Substance: SELINEXOR
     Indication: Product used for unknown indication
     Dosage: 100 MG, WEEKLY
     Route: 048
     Dates: start: 20240604

REACTIONS (5)
  - Dysarthria [Recovering/Resolving]
  - Motor dysfunction [Unknown]
  - Confusional state [Recovering/Resolving]
  - Asthenia [Unknown]
  - Hyponatraemia [Unknown]

NARRATIVE: CASE EVENT DATE: 20240601
